FAERS Safety Report 19306048 (Version 4)
Quarter: 2021Q2

REPORT INFORMATION
  Report Type: Spontaneous
  Country: BR (occurrence: BR)
  Receive Date: 20210526
  Receipt Date: 20210622
  Transmission Date: 20210717
  Serious: Yes (Other)
  Sender: FDA-Public Use
  Company Number: BR-CELLTRION INC.-2021BR006852

PATIENT

DRUGS (8)
  1. REMSIMA [Suspect]
     Active Substance: INFLIXIMAB
     Dosage: 3 AMPOULES 100MG EACH 6 WEEKS
     Route: 042
     Dates: start: 20210127
  2. REMSIMA [Suspect]
     Active Substance: INFLIXIMAB
     Dosage: 3 AMPOULES 100MG EACH 6 WEEKS
     Route: 042
     Dates: start: 20210514
  3. LEFLUNOMIDE. [Concomitant]
     Active Substance: LEFLUNOMIDE
     Indication: ARTHRITIS
     Dosage: 1 COMP/ DAY (APROXIMATELY 8 YEARS)
     Route: 048
  4. REMSIMA [Suspect]
     Active Substance: INFLIXIMAB
     Dosage: 3 AMPOULES 100MG EACH 6 WEEKS
     Route: 042
     Dates: start: 20210324
  5. REMSIMA [Suspect]
     Active Substance: INFLIXIMAB
     Indication: PSORIASIS
     Dosage: 3 AMPOULES 100MG EACH 6 WEEKS
     Route: 042
     Dates: start: 20201216
  6. FLUOXETINE [Concomitant]
     Active Substance: FLUOXETINE HYDROCHLORIDE
     Indication: ANXIETY
     Dosage: 1 COMP/ DAY (APROXIMATELY 1 YEAR)
     Route: 048
  7. REMSIMA [Suspect]
     Active Substance: INFLIXIMAB
     Dosage: 3 AMPOULES 100MG EACH 6 WEEKS
     Route: 042
     Dates: start: 20210210
  8. PAMELOR [Concomitant]
     Active Substance: NORTRIPTYLINE HYDROCHLORIDE
     Indication: ANXIETY
     Dosage: 1 COMP/ DAY (APROXIMATELY 5 YEARS)
     Route: 048

REACTIONS (4)
  - Off label use [Unknown]
  - Intentional dose omission [Unknown]
  - Gastrointestinal infection [Recovered/Resolved]
  - Underdose [Unknown]

NARRATIVE: CASE EVENT DATE: 20210506
